FAERS Safety Report 5820297-0 (Version None)
Quarter: 2008Q3

REPORT INFORMATION
  Report Type: 
  Country: None (occurrence: None)
  Receive Date: 20080724
  Receipt Date: 20070604
  Transmission Date: 20090109
  Serious: No
  Sender: FDA-Public Use
  Company Number: A0654068A

PATIENT
  Age: 52 Year
  Sex: Male

DRUGS (7)
  1. AVANDIA [Suspect]
     Dosage: 4MG TWICE PER DAY
     Route: 048
     Dates: start: 19990101
  2. LIPITOR [Concomitant]
  3. ALTACE [Concomitant]
  4. LANTUS [Concomitant]
  5. METFORMIN [Concomitant]
  6. PRANDIN [Concomitant]
  7. ASPIRIN [Concomitant]

REACTIONS (1)
  - ERECTILE DYSFUNCTION [None]
